FAERS Safety Report 9553593 (Version 1)
Quarter: 2013Q3

REPORT INFORMATION
  Report Type: Spontaneous
  Country: US (occurrence: None)
  Receive Date: 20130924
  Receipt Date: 20130924
  Transmission Date: 20140515
  Serious: Yes (Other)
  Sender: FDA-Public Use
  Company Number: None

PATIENT
  Age: 57 Year
  Sex: Female
  Weight: 68 kg

DRUGS (1)
  1. CYMBALTA [Suspect]
     Indication: DEPRESSION
     Dosage: 1 TABLET ONCE DAILY TAKEN MY MOUTH

REACTIONS (7)
  - Oropharyngeal pain [None]
  - Dysphagia [None]
  - Aphagia [None]
  - Gastrooesophageal reflux disease [None]
  - Aphonia [None]
  - Oesophageal ulcer [None]
  - Oesophageal spasm [None]
